FAERS Safety Report 18396612 (Version 4)
Quarter: 2020Q4

REPORT INFORMATION
  Report Type: Spontaneous
  Country: RU (occurrence: RU)
  Receive Date: 20201019
  Receipt Date: 20201124
  Transmission Date: 20210114
  Serious: Yes (Hospitalization)
  Sender: FDA-Public Use
  Company Number: RU-SA-2020SA287073

PATIENT

DRUGS (2)
  1. ALDURAZYME [Suspect]
     Active Substance: LARONIDASE
     Dosage: UNK UNK, QW
     Route: 041
     Dates: start: 20201118
  2. ALDURAZYME [Suspect]
     Active Substance: LARONIDASE
     Indication: MUCOPOLYSACCHARIDOSIS I
     Dosage: 115.38 UG/KG, QW
     Route: 041
     Dates: start: 201812, end: 20201103

REACTIONS (4)
  - Body temperature increased [Recovered/Resolved]
  - COVID-19 [Recovered/Resolved]
  - Cough [Recovered/Resolved]
  - SARS-CoV-1 test positive [Recovered/Resolved]

NARRATIVE: CASE EVENT DATE: 20201001
